FAERS Safety Report 6137253-8 (Version None)
Quarter: 2009Q1

REPORT INFORMATION
  Report Type: 
  Country: None (occurrence: None)
  Receive Date: 20090330
  Receipt Date: 20090319
  Transmission Date: 20090719
  Serious: Yes (Hospitalization, Other)
  Sender: FDA-Public Use
  Company Number: FR-ELI_LILLY_AND_COMPANY-FR200807001020

PATIENT
  Sex: Female
  Weight: 98 kg

DRUGS (11)
  1. BYETTA [Suspect]
     Indication: DIABETES MELLITUS
     Dosage: 5 UG, 2/D
     Route: 058
     Dates: start: 20080528, end: 20080603
  2. NOVOLOG [Concomitant]
     Indication: DIABETES MELLITUS
     Dosage: 30 IU, EACH EVENING
     Route: 058
     Dates: end: 20080529
  3. INSULATARD [Concomitant]
     Indication: DIABETES MELLITUS
     Dosage: 30 IU, EACH MORNING
     Route: 058
     Dates: end: 20080529
  4. GLUCOPHAGE [Concomitant]
     Indication: DIABETES MELLITUS
     Dosage: 1000 MG, 3/D
     Route: 048
  5. ACALIX [Concomitant]
     Dosage: 50 MG, DAILY (1/D)
     Route: 065
  6. NEURONTIN [Concomitant]
     Dosage: UNK, UNKNOWN
     Route: 065
  7. DEROXAT [Concomitant]
     Dosage: 1 D/F, DAILY (1/D)
     Route: 065
  8. INIPOMP [Concomitant]
     Dosage: 40 MG, DAILY (1/D)
     Route: 065
  9. COTAREG [Concomitant]
     Dosage: 12.5 MG, DAILY (1/D)
     Route: 065
  10. TAHOR [Concomitant]
     Dosage: 10 MG, DAILY (1/D)
     Route: 065
  11. CORDARONE [Concomitant]
     Indication: ATRIAL FIBRILLATION
     Dosage: UNK, UNKNOWN
     Route: 065

REACTIONS (5)
  - DIARRHOEA [None]
  - HYPONATRAEMIA [None]
  - NAUSEA [None]
  - RENAL FAILURE ACUTE [None]
  - VOMITING [None]
